FAERS Safety Report 24234588 (Version 2)
Quarter: 2024Q3

REPORT INFORMATION
  Report Type: Spontaneous
  Country: US (occurrence: US)
  Receive Date: 20240821
  Receipt Date: 20240909
  Transmission Date: 20241017
  Serious: No
  Sender: PFIZER
  Company Number: US-PFIZER INC-202400239840

PATIENT
  Age: 80 Year
  Sex: Male
  Weight: 74.83 kg

DRUGS (4)
  1. PAXLOVID [Suspect]
     Active Substance: NIRMATRELVIR\RITONAVIR
     Indication: COVID-19 treatment
     Dosage: 2X/DAY
     Route: 048
     Dates: start: 20240810, end: 20240814
  2. ATORVASTATIN [Concomitant]
     Active Substance: ATORVASTATIN
     Dosage: 40 (UNKNOWN UNIT), 1X/DAY
  3. AMLODIPINE [Concomitant]
     Active Substance: AMLODIPINE BESYLATE
     Dosage: 5 MG, 1X/DAY
  4. LOSARTAN [Concomitant]
     Active Substance: LOSARTAN\LOSARTAN POTASSIUM
     Dosage: (UNKNOWN UNIT), 1X/DAY

REACTIONS (2)
  - COVID-19 [Recovered/Resolved with Sequelae]
  - Disease recurrence [Recovering/Resolving]

NARRATIVE: CASE EVENT DATE: 20240817
